FAERS Safety Report 6232045-3 (Version None)
Quarter: 2009Q2

REPORT INFORMATION
  Report Type: 
  Country: None (occurrence: None)
  Receive Date: 20090612
  Receipt Date: 20090602
  Transmission Date: 20091009
  Serious: Yes (Death)
  Sender: FDA-Public Use
  Company Number: 2009AL003776

PATIENT
  Age: 69 Year
  Sex: Male

DRUGS (8)
  1. METFORMIN HCL [Suspect]
     Indication: DIABETES MELLITUS
     Dosage: 1000 MG;BID;PO
     Route: 048
     Dates: start: 20090201, end: 20090512
  2. SIMVASTATIN [Concomitant]
  3. ACETYLSALICYLIC ACID [Concomitant]
  4. FERROUS SULFATE TAB [Concomitant]
  5. RAMIPRIL [Concomitant]
  6. FUROSEMIDE [Concomitant]
  7. SPIRONOLACTONE [Concomitant]
  8. QUETIAPINE FUMARATE [Concomitant]

REACTIONS (6)
  - ACIDOSIS [None]
  - ACUTE LEFT VENTRICULAR FAILURE [None]
  - BLOOD GLUCOSE INCREASED [None]
  - BLOOD LACTIC ACID INCREASED [None]
  - BODY TEMPERATURE DECREASED [None]
  - HYPERTENSION [None]
